FAERS Safety Report 5098917-0 (Version None)
Quarter: 2006Q3

REPORT INFORMATION
  Report Type: 
  Country: None (occurrence: None)
  Receive Date: 20060905
  Receipt Date: 20060830
  Transmission Date: 20061208
  Serious: Yes (Hospitalization)
  Sender: FDA-Public Use
  Company Number: 0600867US

PATIENT
  Age: 29 Year
  Sex: Female
  Weight: 53.1 kg

DRUGS (2)
  1. BOTOX [Suspect]
     Indication: SKIN WRINKLING
     Dosage: SEE IMAGE
     Route: 030
     Dates: start: 20051213, end: 20051213
  2. BOTOX [Suspect]
     Indication: SKIN WRINKLING
     Dosage: SEE IMAGE
     Route: 030
     Dates: start: 20051221, end: 20051221

REACTIONS (10)
  - ASTHENIA [None]
  - CEREBROVASCULAR ACCIDENT [None]
  - DEPRESSED LEVEL OF CONSCIOUSNESS [None]
  - FACIAL PARESIS [None]
  - FALL [None]
  - HEADACHE [None]
  - HYPOAESTHESIA [None]
  - MUSCULAR WEAKNESS [None]
  - PARAESTHESIA [None]
  - SYNCOPE [None]
